FAERS Safety Report 9897399 (Version 3)
Quarter: 2014Q1

REPORT INFORMATION
  Report Type: Spontaneous
  Country: IT (occurrence: IT)
  Receive Date: 20140214
  Receipt Date: 20140311
  Transmission Date: 20141002
  Serious: Yes (Other)
  Sender: FDA-Public Use
  Company Number: IT-VERTEX PHARMACEUTICALS INC-2014-000745

PATIENT
  Age: 65 Year
  Sex: Female

DRUGS (4)
  1. INCIVO [Suspect]
     Indication: HEPATITIS C
     Dosage: 2250 MG, QD
     Route: 048
     Dates: start: 20131123, end: 20140201
  2. PEGINTERFERON ALFA-2A [Suspect]
     Indication: HEPATITIS C
     Dosage: 180 ?G, QW
     Route: 058
  3. RIBAVIRIN [Suspect]
     Indication: HEPATITIS C
     Dosage: 1200 MG, QD
     Route: 048
  4. RIBAVIRIN [Suspect]
     Dosage: 400 MG, UNK
     Route: 048

REACTIONS (4)
  - Q fever [Recovering/Resolving]
  - Anaemia [Recovering/Resolving]
  - Hypersensitivity [Recovering/Resolving]
  - Lung disorder [Recovering/Resolving]
